FAERS Safety Report 15575901 (Version 1)
Quarter: 2018Q4

REPORT INFORMATION
  Report Type: Spontaneous
  Country: FR (occurrence: FR)
  Receive Date: 20181101
  Receipt Date: 20181101
  Transmission Date: 20190205
  Serious: Yes (Other)
  Sender: FDA-Public Use
  Company Number: FR-TEVA-2018-FR-970760

PATIENT
  Age: 52 Year
  Sex: Female
  Weight: 50.2 kg

DRUGS (18)
  1. LIPANTHYL [Concomitant]
     Active Substance: FENOFIBRATE
     Route: 065
  2. VFEND [Suspect]
     Active Substance: VORICONAZOLE
     Indication: ASPERGILLUS INFECTION
     Dosage: 300 MILLIGRAM DAILY;
     Route: 042
     Dates: start: 20181004, end: 20181004
  3. IMIPENEM CILASTATINE MYLAN [Suspect]
     Active Substance: IMIPENEM
     Indication: OPPORTUNISTIC INFECTION PROPHYLAXIS
     Dosage: 500/500 MILLIGRAMS 3 TIMES DAILY
     Route: 042
     Dates: start: 20180925
  4. PONATINIB [Concomitant]
     Active Substance: PONATINIB
     Route: 065
  5. HYDROCORTISONE. [Concomitant]
     Active Substance: HYDROCORTISONE
     Route: 065
  6. BACTRIM [Concomitant]
     Active Substance: SULFAMETHOXAZOLE\TRIMETHOPRIM
     Route: 065
  7. MOVICOL [Concomitant]
     Active Substance: POLYETHYLENE GLYCOL 3350\POTASSIUM CHLORIDE\SODIUM BICARBONATE\SODIUM CHLORIDE
     Route: 065
  8. ESCITALOPRAM ARROW [Suspect]
     Active Substance: ESCITALOPRAM OXALATE
     Indication: DEPRESSION
     Dosage: 10 MILLIGRAM DAILY;
     Route: 048
     Dates: start: 20181004
  9. SPASFON (PHLOROGLUCINOL\TRIMETHYLPHLOROGLUCINOL) [Concomitant]
     Active Substance: PHLOROGLUCINOL\1,3,5-TRIMETHOXYBENZENE
     Route: 065
  10. LANSOYL [Concomitant]
     Active Substance: MINERAL OIL
     Route: 065
  11. OGASTORO [Concomitant]
     Active Substance: LANSOPRAZOLE
     Route: 065
  12. VALACICLOVIR [Concomitant]
     Active Substance: VALACYCLOVIR HYDROCHLORIDE
     Route: 065
  13. HEPARINE SODIQUE [Concomitant]
     Active Substance: HEPARIN SODIUM
     Route: 065
  14. ATARAX [Concomitant]
     Active Substance: HYDROXYZINE HYDROCHLORIDE
     Route: 065
  15. LINEZOLIDE KABI [Suspect]
     Active Substance: LINEZOLID
     Indication: OPPORTUNISTIC INFECTION PROPHYLAXIS
     Dosage: 1200 MILLIGRAM DAILY;
     Route: 042
     Dates: start: 20180930
  16. VFEND [Suspect]
     Active Substance: VORICONAZOLE
     Indication: ASPERGILLUS INFECTION
     Dosage: 400 MILLIGRAM DAILY;
     Dates: start: 20181005
  17. TRIMEBUTINE [Concomitant]
     Active Substance: TRIMEBUTINE
     Route: 065
  18. IMOVANE [Concomitant]
     Active Substance: ZOPICLONE
     Route: 065

REACTIONS (1)
  - Rash maculo-papular [Recovering/Resolving]

NARRATIVE: CASE EVENT DATE: 20181008
